FAERS Safety Report 7724635-3 (Version None)
Quarter: 2011Q3

REPORT INFORMATION
  Report Type: 
  Country: None (occurrence: None)
  Receive Date: 20110901
  Receipt Date: 20110829
  Transmission Date: 20111222
  Serious: Yes (Other)
  Sender: FDA-Public Use
  Company Number: BR-PFIZER INC-2011131247

PATIENT
  Age: 43 Year
  Sex: Female

DRUGS (3)
  1. SYNTHROID [Concomitant]
     Indication: HYPOTHYROIDISM
     Dosage: UNK
  2. ALPRAZOLAM [Suspect]
     Dosage: 1 MG, UNK
     Dates: start: 20110401
  3. ALPRAZOLAM [Suspect]
     Indication: SLEEP DISORDER
     Dosage: 0.5 MG (ONE TABLET), 1X/DAY
     Route: 048
     Dates: start: 20080101

REACTIONS (5)
  - CRYING [None]
  - DEPRESSION [None]
  - FEAR [None]
  - PANIC DISORDER [None]
  - FATIGUE [None]
